FAERS Safety Report 8818485 (Version 1)
Quarter: 2012Q4

REPORT INFORMATION
  Report Type: 
  Country: CA (occurrence: CA)
  Receive Date: 20121001
  Receipt Date: 20121001
  Transmission Date: 20130627
  Serious: Yes (Other)
  Sender: FDA-Public Use
  Company Number: CA-ELI_LILLY_AND_COMPANY-CA201209001682

PATIENT
  Age: 78 Year
  Sex: Female

DRUGS (13)
  1. FORTEO [Suspect]
     Indication: OSTEOPOROSIS
     Dosage: 20 ug, qd
     Route: 058
     Dates: start: 20120607
  2. LASIX                              /00032601/ [Concomitant]
  3. DIGOXIN [Concomitant]
  4. METOPROLOL [Concomitant]
  5. RAMIPRIL [Concomitant]
  6. PREDNISONE [Concomitant]
     Dosage: 7.5 mg, UNK
  7. PRADAX [Concomitant]
  8. POTASSIUM [Concomitant]
  9. MAGNESIUM [Concomitant]
  10. PANTOLOC                           /01263204/ [Concomitant]
  11. VITAMIN D [Concomitant]
  12. VITAMIN C [Concomitant]
  13. PLAQUENIL [Concomitant]
     Dosage: 400 mg, UNK

REACTIONS (1)
  - Breast cancer [Recovered/Resolved]
